FAERS Safety Report 25708617 (Version 1)
Quarter: 2025Q3

REPORT INFORMATION
  Report Type: Spontaneous
  Country: GB (occurrence: GB)
  Receive Date: 20250821
  Receipt Date: 20250821
  Transmission Date: 20251021
  Serious: Yes (Death, Hospitalization, Other)
  Sender: GALDERMA
  Company Number: GB-MLMSERVICE-20250806-PI604233-00129-1

PATIENT

DRUGS (2)
  1. DOXYCYCLINE [Suspect]
     Active Substance: DOXYCYCLINE
     Indication: Rash pruritic
     Route: 065
  2. FLUCLOXACILLIN [Concomitant]
     Active Substance: FLUCLOXACILLIN
     Indication: Rash pruritic
     Route: 065

REACTIONS (4)
  - Toxic epidermal necrolysis [Fatal]
  - Hypothermia [Unknown]
  - Pseudomonas infection [Unknown]
  - Intentional product use issue [Recovered/Resolved]
